FAERS Safety Report 15844420 (Version 1)
Quarter: 2019Q1

REPORT INFORMATION
  Report Type: Spontaneous
  Country: CA (occurrence: CA)
  Receive Date: 20190118
  Receipt Date: 20190118
  Transmission Date: 20190417
  Serious: Yes (Death, Hospitalization)
  Sender: FDA-Public Use
  Company Number: CA-ACTELION-A-NJ2019-184692

PATIENT
  Age: 60 Year
  Sex: Female
  Weight: 100.68 kg

DRUGS (5)
  1. UPTRAVI [Suspect]
     Active Substance: SELEXIPAG
     Indication: PULMONARY HYPERTENSION
     Dosage: 1600 MCG, UNK
     Route: 048
     Dates: start: 20160707, end: 20181226
  2. ZOPICLONE [Concomitant]
     Active Substance: ZOPICLONE
     Dosage: UNK, PRN
  3. LASIX [Concomitant]
     Active Substance: FUROSEMIDE
     Dosage: 40 MG, BID
     Route: 048
  4. OPSUMIT [Suspect]
     Active Substance: MACITENTAN
     Indication: PULMONARY HYPERTENSION
     Dosage: 10 MG, QD
     Route: 048
     Dates: start: 20151202, end: 20181226
  5. POTASSIUM [Concomitant]
     Active Substance: POTASSIUM
     Dosage: UNK, PRN

REACTIONS (3)
  - Renal failure [Unknown]
  - Death [Fatal]
  - Therapeutic response decreased [Unknown]

NARRATIVE: CASE EVENT DATE: 20181226
